FAERS Safety Report 8236739-X (Version None)
Quarter: 2012Q1

REPORT INFORMATION
  Report Type: 
  Country: None (occurrence: None)
  Receive Date: 20120323
  Receipt Date: 20120308
  Transmission Date: 20120608
  Serious: Yes (Other)
  Sender: FDA-Public Use
  Company Number: US-2012-1346

PATIENT
  Age: 68 Year
  Sex: Male

DRUGS (1)
  1. NAVELBINE [Suspect]
     Indication: BLADDER CANCER STAGE IV

REACTIONS (3)
  - OFF LABEL USE [None]
  - PANCYTOPENIA [None]
  - DISEASE PROGRESSION [None]
